FAERS Safety Report 12830929 (Version 2)
Quarter: 2016Q4

REPORT INFORMATION
  Report Type: Spontaneous
  Country: US (occurrence: US)
  Receive Date: 20161007
  Receipt Date: 20161024
  Transmission Date: 20170207
  Serious: No
  Sender: FDA-Public Use
  Company Number: US-009507513-1610USA002995

PATIENT
  Age: 38 Year
  Sex: Female
  Weight: 104.31 kg

DRUGS (1)
  1. NEXPLANON [Suspect]
     Active Substance: ETONOGESTREL
     Dosage: 68 MG EVERY 3 YEARS, IN ARM
     Route: 059
     Dates: start: 201510

REACTIONS (3)
  - Medical device site discomfort [Unknown]
  - Device breakage [Not Recovered/Not Resolved]
  - No adverse event [Unknown]

NARRATIVE: CASE EVENT DATE: 2016
